FAERS Safety Report 5068740-1 (Version None)
Quarter: 2006Q3

REPORT INFORMATION
  Report Type: 
  Country: None (occurrence: None)
  Receive Date: 20060802
  Receipt Date: 20060313
  Transmission Date: 20061208
  Serious: No
  Sender: FDA-Public Use
  Company Number: US-BRISTOL-MYERS SQUIBB COMPANY-13313002

PATIENT
  Age: 73 Year
  Sex: Female

DRUGS (12)
  1. COUMADIN [Suspect]
     Indication: ATRIAL FIBRILLATION
     Dates: start: 20040101
  2. DEMADEX [Concomitant]
  3. FOLGARD [Concomitant]
  4. K-DUR 10 [Concomitant]
  5. INSULIN [Concomitant]
  6. NEXIUM [Concomitant]
  7. NITROGLYCERIN SPRAY [Concomitant]
  8. NITROGLYCERIN [Concomitant]
     Route: 062
  9. SYNTHROID [Concomitant]
  10. SOTALOL HCL [Concomitant]
  11. XANAX [Concomitant]
  12. ZETIA [Concomitant]

REACTIONS (1)
  - INTERNATIONAL NORMALISED RATIO DECREASED [None]
